FAERS Safety Report 5592706-6 (Version None)
Quarter: 2008Q1

REPORT INFORMATION
  Report Type: 
  Country: None (occurrence: None)
  Receive Date: 20080116
  Receipt Date: 20080110
  Transmission Date: 20080703
  Serious: Yes (Hospitalization)
  Sender: FDA-Public Use
  Company Number: JP-SP-2006-02038

PATIENT
  Age: 66 Year
  Sex: Male

DRUGS (2)
  1. IMMUCYST [Suspect]
     Indication: BLADDER CANCER
     Route: 043
     Dates: start: 20060718, end: 20060725
  2. ETHAMBUTOL HCL [Concomitant]
     Dates: start: 20060718, end: 20060802

REACTIONS (2)
  - BOVINE TUBERCULOSIS [None]
  - WHITE BLOOD CELLS URINE POSITIVE [None]
